FAERS Safety Report 10293279 (Version 5)
Quarter: 2016Q3

REPORT INFORMATION
  Report Type: Spontaneous
  Country: US (occurrence: US)
  Receive Date: 20140710
  Receipt Date: 20160831
  Transmission Date: 20161109
  Serious: Yes (Hospitalization, Other)
  Sender: FDA-Public Use
  Company Number: US-GLAXOSMITHKLINE-A0874665A

PATIENT
  Age: 68 Year
  Sex: Female

DRUGS (15)
  1. XANAX [Concomitant]
     Active Substance: ALPRAZOLAM
  2. KLONOPIN [Concomitant]
     Active Substance: CLONAZEPAM
  3. SYNTHROID [Concomitant]
     Active Substance: LEVOTHYROXINE SODIUM
  4. URSODIOL. [Concomitant]
     Active Substance: URSODIOL
  5. SPIRIVA [Concomitant]
     Active Substance: TIOTROPIUM BROMIDE MONOHYDRATE
  6. ECOTRIN [Concomitant]
     Active Substance: ASPIRIN
  7. ADVAIR DISKUS [Suspect]
     Active Substance: FLUTICASONE PROPIONATE\SALMETEROL XINAFOATE
     Indication: BRONCHITIS
     Dosage: 1 PUFF(S), QD, 500/50 UG
  8. ADVAIR DISKUS [Suspect]
     Active Substance: FLUTICASONE PROPIONATE\SALMETEROL XINAFOATE
     Dosage: 100/50 UG
     Dates: start: 2007
  9. PREDNISONE. [Suspect]
     Active Substance: PREDNISONE
     Indication: PRODUCT USED FOR UNKNOWN INDICATION
     Dosage: TABLET
     Route: 065
  10. XOPENEX [Concomitant]
     Active Substance: LEVALBUTEROL HYDROCHLORIDE
  11. ADVAIR DISKUS [Suspect]
     Active Substance: FLUTICASONE PROPIONATE\SALMETEROL XINAFOATE
     Indication: CHRONIC OBSTRUCTIVE PULMONARY DISEASE
     Dosage: 100/50 INCREASED TO 250/50 AND THEN 500/50
     Route: 055
     Dates: start: 2001
  12. SOLU-MEDROL [Suspect]
     Active Substance: METHYLPREDNISOLONE SODIUM SUCCINATE
     Indication: PRODUCT USED FOR UNKNOWN INDICATION
     Route: 065
  13. CLONIDINE. [Concomitant]
     Active Substance: CLONIDINE
  14. ADVAIR DISKUS [Suspect]
     Active Substance: FLUTICASONE PROPIONATE\SALMETEROL XINAFOATE
     Indication: ASTHMA
     Dosage: 250/50 UG
  15. ZITHROMAX [Concomitant]
     Active Substance: AZITHROMYCIN DIHYDRATE

REACTIONS (26)
  - Haemophilus infection [Recovering/Resolving]
  - Asthenia [Recovering/Resolving]
  - Laser therapy [Unknown]
  - Carbon dioxide abnormal [Unknown]
  - Colectomy [Unknown]
  - Superior vena cava syndrome [Recovering/Resolving]
  - Device occlusion [Unknown]
  - Hospitalisation [Unknown]
  - Superior vena cava occlusion [Unknown]
  - Adverse event [Unknown]
  - Central venous catheter removal [Unknown]
  - Stent placement [Unknown]
  - Gastroenteritis norovirus [Unknown]
  - Pneumonia [Unknown]
  - Dyspnoea exertional [Recovering/Resolving]
  - Drug ineffective [Recovering/Resolving]
  - Biliary cirrhosis [Recovering/Resolving]
  - Chronic obstructive pulmonary disease [Recovering/Resolving]
  - Dyspnoea [Unknown]
  - Ill-defined disorder [Unknown]
  - Intentional product use issue [Unknown]
  - Colon cancer [Unknown]
  - Vascular graft [Unknown]
  - Hepatic failure [Not Recovered/Not Resolved]
  - Angioplasty [Unknown]
  - Respiratory disorder [Recovering/Resolving]

NARRATIVE: CASE EVENT DATE: 2005
